FAERS Safety Report 21929701 (Version 1)
Quarter: 2023Q1

REPORT INFORMATION
  Report Type: Spontaneous
  Country: US (occurrence: US)
  Receive Date: 20230131
  Receipt Date: 20230131
  Transmission Date: 20230417
  Serious: No
  Sender: FDA-Public Use
  Company Number: US-SANOFI-01462492

PATIENT
  Age: 75 Year
  Sex: Female

DRUGS (1)
  1. APIDRA SOLOSTAR [Suspect]
     Active Substance: INSULIN GLULISINE
     Indication: Type 2 diabetes mellitus
     Dosage: UNK (TAKES A RANGE OF 1-3 UNITS OF APIDRA DEPENDING ON HER BS^S)
     Dates: start: 2013

REACTIONS (1)
  - Intentional product misuse [Unknown]
